FAERS Safety Report 11826990 (Version 1)
Quarter: 2015Q4

REPORT INFORMATION
  Report Type: Spontaneous
  Country: PT (occurrence: PT)
  Receive Date: 20151211
  Receipt Date: 20151211
  Transmission Date: 20160305
  Serious: Yes (Other)
  Sender: FDA-Public Use
  Company Number: PT-PFIZER INC-2015418189

PATIENT
  Age: 59 Year
  Sex: Female

DRUGS (5)
  1. RELERT [Suspect]
     Active Substance: ELETRIPTAN HYDROBROMIDE
     Indication: MIGRAINE
     Dosage: UNK
     Route: 048
     Dates: start: 2009
  2. RELERT [Suspect]
     Active Substance: ELETRIPTAN HYDROBROMIDE
     Dosage: 40 MG, AS NEEDED
     Route: 048
     Dates: start: 2015
  3. ADT [Concomitant]
     Active Substance: AMITRIPTYLINE HYDROCHLORIDE
     Route: 048
     Dates: start: 2015
  4. DIPLEXIL-R [Concomitant]
     Route: 048
  5. INDOCID [Concomitant]
     Active Substance: INDOMETHACIN
     Route: 054
     Dates: start: 2015

REACTIONS (4)
  - Pain in extremity [Unknown]
  - Cyanosis [Unknown]
  - Peripheral vascular disorder [Unknown]
  - Pain [Unknown]

NARRATIVE: CASE EVENT DATE: 2009
